FAERS Safety Report 18201308 (Version 5)
Quarter: 2021Q2

REPORT INFORMATION
  Report Type: Spontaneous
  Country: GB (occurrence: GB)
  Receive Date: 20200827
  Receipt Date: 20210409
  Transmission Date: 20210717
  Serious: Yes (Hospitalization, Other)
  Sender: FDA-Public Use
  Company Number: GB-TEVA-2020-GB-1820097

PATIENT
  Age: 70 Year
  Sex: Female

DRUGS (2)
  1. PACLITAXEL. [Suspect]
     Active Substance: PACLITAXEL
     Indication: MALIGNANT PERITONEAL NEOPLASM
     Dosage: 336 MG
     Route: 042
     Dates: start: 20200724
  2. CARBOPLATIN. [Suspect]
     Active Substance: CARBOPLATIN
     Indication: MALIGNANT PERITONEAL NEOPLASM
     Dosage: UNKNOWN
     Route: 042
     Dates: start: 20200724

REACTIONS (4)
  - Campylobacter infection [Unknown]
  - Malaise [Unknown]
  - Neutropenia [Not Recovered/Not Resolved]
  - Pyrexia [Unknown]
